FAERS Safety Report 7571398-0 (Version None)
Quarter: 2011Q2

REPORT INFORMATION
  Report Type: 
  Country: None (occurrence: None)
  Receive Date: 20110624
  Receipt Date: 20110617
  Transmission Date: 20111010
  Serious: Yes (Other)
  Sender: FDA-Public Use
  Company Number: FR-PFIZER INC-2011133192

PATIENT
  Age: 30 Year
  Sex: Female

DRUGS (7)
  1. BACTRIM [Concomitant]
     Dosage: UNK
     Dates: start: 20110407
  2. MYAMBUTOL [Concomitant]
     Dosage: 400 MG, 2X/DAY
     Dates: start: 20110325
  3. SUSTIVA [Concomitant]
     Dosage: UNK
     Dates: start: 20110331
  4. RIFATER [Suspect]
     Indication: TUBERCULOSIS
     Dosage: 4 DF PER DAY
     Route: 048
     Dates: start: 20110325, end: 20110412
  5. ACYCLOVIR [Suspect]
     Dosage: UNK
     Route: 042
     Dates: start: 20110328, end: 20110411
  6. TRUVADA [Concomitant]
     Dosage: UNK
     Dates: start: 20110331
  7. FLUCONAZOLE [Suspect]
     Dosage: UNK
     Route: 048
     Dates: start: 20110330, end: 20110412

REACTIONS (2)
  - CYTOLYTIC HEPATITIS [None]
  - CHOLESTASIS [None]
